FAERS Safety Report 4364629-1 (Version None)
Quarter: 2004Q2

REPORT INFORMATION
  Report Type: 
  Country: None (occurrence: None)
  Receive Date: 20040521
  Receipt Date: 20040513
  Transmission Date: 20050107
  Serious: Yes (Hospitalization, Other)
  Sender: FDA-Public Use
  Company Number: 138902USA

PATIENT
  Age: 23 Year
  Sex: Female

DRUGS (1)
  1. PHENYLEPHRINE [Suspect]
     Dates: start: 20040501

REACTIONS (5)
  - ACUTE PULMONARY OEDEMA [None]
  - BLOOD PRESSURE SYSTOLIC INCREASED [None]
  - EJECTION FRACTION DECREASED [None]
  - MEDICATION ERROR [None]
  - MITRAL VALVE INCOMPETENCE [None]
